FAERS Safety Report 23251220 (Version 2)
Quarter: 2024Q1

REPORT INFORMATION
  Report Type: Report from Study
  Country: US (occurrence: US)
  Receive Date: 20231201
  Receipt Date: 20240314
  Transmission Date: 20240410
  Serious: Yes (Death, Hospitalization, Other)
  Sender: FDA-Public Use
  Company Number: US-ARGENX-2023-ARGX-US001823

PATIENT

DRUGS (1)
  1. VYVGART [Suspect]
     Active Substance: EFGARTIGIMOD ALFA-FCAB
     Indication: Myasthenia gravis
     Dosage: UNK
     Route: 042
     Dates: start: 20230406, end: 20231117

REACTIONS (6)
  - Death [Fatal]
  - Fall [Unknown]
  - Pneumonia [Unknown]
  - Cellulitis [Recovering/Resolving]
  - Pulmonary embolism [Unknown]
  - Wound [Unknown]

NARRATIVE: CASE EVENT DATE: 20230501
